FAERS Safety Report 8384087-X (Version None)
Quarter: 2012Q2

REPORT INFORMATION
  Report Type: 
  Country: None (occurrence: None)
  Receive Date: 20120524
  Receipt Date: 20120515
  Transmission Date: 20120825
  Serious: Yes (Hospitalization)
  Sender: FDA-Public Use
  Company Number: BR-ROCHE-1069683

PATIENT
  Sex: Female
  Weight: 58 kg

DRUGS (11)
  1. METICORTEN [Concomitant]
  2. REUQUINOL [Concomitant]
  3. TYLEX (BRAZIL) [Concomitant]
  4. OSTEONUTRI [Concomitant]
     Dosage: 600 MG CALCIUM/ 400 UI VITAMIN D3
  5. CELEBREX [Concomitant]
  6. OSTEOFORM [Concomitant]
  7. ACTEMRA [Suspect]
     Indication: RHEUMATOID ARTHRITIS
     Route: 065
     Dates: start: 20110501, end: 20111201
  8. CITALOPRAM HYDROBROMIDE [Concomitant]
  9. AMYTRIL [Concomitant]
  10. ARAVA [Concomitant]
  11. LEXOTAN [Concomitant]

REACTIONS (4)
  - HIP DISARTICULATION [None]
  - ARTHROPATHY [None]
  - ARTHRALGIA [None]
  - PAIN [None]
